FAERS Safety Report 18832736 (Version 1)
Quarter: 2021Q1

REPORT INFORMATION
  Report Type: Spontaneous
  Country: CA (occurrence: CA)
  Receive Date: 20210203
  Receipt Date: 20210203
  Transmission Date: 20210419
  Serious: Yes (Other)
  Sender: FDA-Public Use
  Company Number: CA-JNJFOC-20210148395

PATIENT
  Age: 50 Year
  Sex: Female
  Weight: 67 kg

DRUGS (5)
  1. INFLIXIMAB, RECOMBINANT [Suspect]
     Active Substance: INFLIXIMAB
     Indication: CROHN^S DISEASE
     Route: 042
  2. OXYCODONE [Concomitant]
     Active Substance: OXYCODONE
     Route: 048
  3. OXYCODONE [Concomitant]
     Active Substance: OXYCODONE
     Route: 048
  4. BUDESONIDE. [Concomitant]
     Active Substance: BUDESONIDE
     Route: 048
  5. PREDNISONE. [Concomitant]
     Active Substance: PREDNISONE
     Route: 048

REACTIONS (9)
  - Blood pressure increased [Not Recovered/Not Resolved]
  - Headache [Not Recovered/Not Resolved]
  - Lethargy [Not Recovered/Not Resolved]
  - Disease recurrence [Not Recovered/Not Resolved]
  - Fatigue [Not Recovered/Not Resolved]
  - Heart rate decreased [Not Recovered/Not Resolved]
  - Nausea [Not Recovered/Not Resolved]
  - Condition aggravated [Not Recovered/Not Resolved]
  - Neuropathy peripheral [Not Recovered/Not Resolved]
